FAERS Safety Report 23159998 (Version 1)
Quarter: 2023Q4

REPORT INFORMATION
  Report Type: Spontaneous
  Country: FR (occurrence: FR)
  Receive Date: 20231108
  Receipt Date: 20231108
  Transmission Date: 20240109
  Serious: Yes (Other)
  Sender: FDA-Public Use
  Company Number: FR-AMGEN- FRASP2023170109

PATIENT

DRUGS (2)
  1. LUMAKRAS [Suspect]
     Active Substance: SOTORASIB
     Indication: Product used for unknown indication
     Dosage: 720 MILLIGRAM, QD
     Route: 065
  2. LUMAKRAS [Suspect]
     Active Substance: SOTORASIB
     Dosage: 480 MILLIGRAM
     Route: 065
     Dates: start: 20230224, end: 20230815

REACTIONS (3)
  - Disease progression [Unknown]
  - Off label use [Unknown]
  - Adverse drug reaction [Unknown]
